FAERS Safety Report 5448801-5 (Version None)
Quarter: 2007Q3

REPORT INFORMATION
  Report Type: 
  Country: None (occurrence: None)
  Receive Date: 20070911
  Receipt Date: 20070619
  Transmission Date: 20080115
  Serious: No
  Sender: FDA-Public Use
  Company Number: US-BRISTOL-MYERS SQUIBB COMPANY-13819370

PATIENT
  Age: 66 Year
  Sex: Male
  Weight: 88 kg

DRUGS (4)
  1. EMSAM [Suspect]
     Indication: DEPRESSION
     Route: 062
  2. EMSAM [Suspect]
     Indication: ANXIETY
     Route: 062
  3. ASPIRIN [Concomitant]
  4. XANAX [Concomitant]

REACTIONS (2)
  - HEADACHE [None]
  - NECK PAIN [None]
